FAERS Safety Report 8550911 (Version 8)
Quarter: 2013Q1

REPORT INFORMATION
  Report Type: Spontaneous
  Country: BR (occurrence: BR)
  Receive Date: 20120508
  Receipt Date: 20130206
  Transmission Date: 20140127
  Serious: Yes (Other)
  Sender: FDA-Public Use
  Company Number: PHHY2012BR030897

PATIENT
  Age: 51 Year
  Sex: Male

DRUGS (3)
  1. TRILEPTAL [Suspect]
     Indication: EPILEPSY
     Dosage: 1 DF, DAILY
     Route: 048
  2. RIVOTRIL [Concomitant]
     Dosage: 0.5 DF, DAILY
     Route: 048
  3. HALDOL [Concomitant]
     Dosage: 5 MG, UNK

REACTIONS (24)
  - Cardiac murmur [Recovered/Resolved]
  - Self injurious behaviour [Recovered/Resolved]
  - Disability [Recovered/Resolved]
  - Dysgeusia [Recovered/Resolved]
  - Restlessness [Recovered/Resolved]
  - Gastrointestinal disorder [Recovered/Resolved]
  - Wrong technique in drug usage process [Recovered/Resolved]
  - Feeling abnormal [Recovered/Resolved]
  - Sleep disorder [Recovered/Resolved]
  - Salivary hypersecretion [Recovered/Resolved]
  - Blood cholesterol increased [Recovered/Resolved]
  - Head discomfort [Recovered/Resolved]
  - Malaise [Recovered/Resolved]
  - Memory impairment [Recovered/Resolved]
  - Pain [Recovered/Resolved]
  - Cough [Recovered/Resolved]
  - Retching [Recovered/Resolved]
  - Dyspnoea [Recovered/Resolved]
  - Dizziness [Recovered/Resolved]
  - Somnolence [Recovered/Resolved]
  - Nausea [Recovered/Resolved]
  - Vomiting [Recovered/Resolved]
  - Headache [Recovered/Resolved]
  - Depression [Recovered/Resolved]
